FAERS Safety Report 6545665-3 (Version None)
Quarter: 2010Q1

REPORT INFORMATION
  Report Type: 
  Country: None (occurrence: None)
  Receive Date: 20100119
  Receipt Date: 20100104
  Transmission Date: 20100710
  Serious: Yes (Death, Hospitalization)
  Sender: FDA-Public Use
  Company Number: 2009AC000352

PATIENT
  Age: 82 Year
  Sex: Female

DRUGS (8)
  1. DIGOXIN [Suspect]
     Dosage: 0.25 MG;PO
     Route: 048
     Dates: start: 20070401, end: 20070801
  2. DIGOXIN [Suspect]
     Dosage: 0.125 MG;PO
     Route: 048
     Dates: start: 20070801
  3. FLEXERIL [Concomitant]
  4. CARDIZEM [Concomitant]
  5. LASIX [Concomitant]
  6. LOVENOX [Concomitant]
  7. POTASSIUM [Concomitant]
  8. DIOVAN [Concomitant]

REACTIONS (14)
  - ATRIAL FIBRILLATION [None]
  - CARDIAC FAILURE CONGESTIVE [None]
  - CARDIOMEGALY [None]
  - CEREBRAL ARTERY OCCLUSION [None]
  - CEREBRAL INFARCTION [None]
  - ECONOMIC PROBLEM [None]
  - FATIGUE [None]
  - HAEMORRHAGE INTRACRANIAL [None]
  - HYPERTENSION [None]
  - INJURY [None]
  - LETHARGY [None]
  - PNEUMONIA [None]
  - PULMONARY CONGESTION [None]
  - RESTLESS LEGS SYNDROME [None]
